FAERS Safety Report 18393242 (Version 2)
Quarter: 2020Q4

REPORT INFORMATION
  Report Type: Report from Study
  Country: US (occurrence: US)
  Receive Date: 20201016
  Receipt Date: 20201113
  Transmission Date: 20210114
  Serious: Yes (Hospitalization)
  Sender: FDA-Public Use
  Company Number: US-JNJFOC-20201006737

PATIENT
  Age: 65 Year
  Sex: Female
  Weight: 90.8 kg

DRUGS (2)
  1. OPSUMIT [Suspect]
     Active Substance: MACITENTAN
     Indication: PULMONARY ARTERIAL HYPERTENSION
     Route: 065
  2. UPTRAVI [Suspect]
     Active Substance: SELEXIPAG
     Indication: PULMONARY ARTERIAL HYPERTENSION
     Route: 048

REACTIONS (7)
  - Fluid retention [Unknown]
  - Respiratory disorder [Unknown]
  - Urinary tract infection [Unknown]
  - Disorientation [Unknown]
  - Confusional state [Unknown]
  - Dizziness [Unknown]
  - Tremor [Unknown]
